FAERS Safety Report 5612598-6 (Version None)
Quarter: 2008Q1

REPORT INFORMATION
  Report Type: 
  Country: None (occurrence: None)
  Receive Date: 20080204
  Receipt Date: 20080130
  Transmission Date: 20080703
  Serious: Yes (Other)
  Sender: FDA-Public Use
  Company Number: B0463433A

PATIENT
  Age: 18 Year
  Sex: Male

DRUGS (5)
  1. ZOVIRAX [Suspect]
     Indication: ERYTHEMA MULTIFORME
     Route: 042
     Dates: start: 20060616, end: 20060618
  2. CHLORHEXIDINE DIGLUCONATE [Concomitant]
     Route: 061
  3. PANTOLOC [Concomitant]
     Dosage: 40MG PER DAY
  4. URBASON [Concomitant]
  5. CALCIUM CARBONATE [Concomitant]

REACTIONS (1)
  - TACHYCARDIA [None]
